FAERS Safety Report 13846155 (Version 1)
Quarter: 2017Q3

REPORT INFORMATION
  Report Type: Spontaneous
  Country: US (occurrence: US)
  Receive Date: 20170808
  Receipt Date: 20170808
  Transmission Date: 20171127
  Serious: No
  Sender: FDA-Public Use
  Company Number: US-ROCHE-731213

PATIENT
  Sex: Female
  Weight: 65.3 kg

DRUGS (5)
  1. GLUCOSAMINE SULFATE [Concomitant]
     Active Substance: GLUCOSAMINE SULFATE
     Route: 065
  2. BONIVA [Suspect]
     Active Substance: IBANDRONATE SODIUM
     Indication: OSTEOPENIA
     Route: 048
  3. MELATONIN [Concomitant]
     Active Substance: MELATONIN
     Route: 065
  4. CRESTOR [Concomitant]
     Active Substance: ROSUVASTATIN CALCIUM
     Route: 065
  5. COENZYME Q-10 [Concomitant]
     Route: 065

REACTIONS (1)
  - Alopecia [Not Recovered/Not Resolved]
